FAERS Safety Report 25289225 (Version 3)
Quarter: 2025Q3

REPORT INFORMATION
  Report Type: Spontaneous
  Country: JP (occurrence: JP)
  Receive Date: 20250509
  Receipt Date: 20250707
  Transmission Date: 20251021
  Serious: Yes (Death, Other)
  Sender: REGENERON
  Company Number: JP-REGENERON PHARMACEUTICALS, INC.-2025-032578

PATIENT
  Age: 43 Year
  Sex: Female

DRUGS (10)
  1. LIBTAYO [Suspect]
     Active Substance: CEMIPLIMAB-RWLC
     Indication: Cervix carcinoma recurrent
     Dosage: 350 MG, Q3W
     Route: 042
     Dates: start: 20230606, end: 20230901
  2. NAUZELIN [Concomitant]
     Active Substance: DOMPERIDONE
     Dosage: UNK, TID
  3. GLYCOPYRROLATE\INDACATEROL\MOMETASONE FUROATE [Concomitant]
     Active Substance: GLYCOPYRROLATE\INDACATEROL\MOMETASONE FUROATE
     Dosage: UNK, QD
  4. BILASTINE [Concomitant]
     Active Substance: BILASTINE
     Dosage: UNK, QD
  5. PRANLUKAST [Concomitant]
     Active Substance: PRANLUKAST
     Dosage: UNK, BID
  6. THEO-DUR [Concomitant]
     Active Substance: THEOPHYLLINE ANHYDROUS
     Dosage: UNK, BID
  7. GASTER [Concomitant]
     Active Substance: FAMOTIDINE
     Dosage: UNK, BID
  8. CARBOCYSTEINE [Concomitant]
     Active Substance: CARBOCYSTEINE
     Dosage: UNK, TID
  9. CODEINE PHOSPHATE [Concomitant]
     Active Substance: CODEINE PHOSPHATE
     Dosage: UNK, TID
  10. ESTRADIOL [Concomitant]
     Active Substance: ESTRADIOL
     Dosage: UNK, QOD

REACTIONS (1)
  - Interstitial lung disease [Fatal]

NARRATIVE: CASE EVENT DATE: 20230908
